FAERS Safety Report 24326477 (Version 5)
Quarter: 2025Q3

REPORT INFORMATION
  Report Type: Spontaneous
  Country: US (occurrence: US)
  Receive Date: 20240917
  Receipt Date: 20250813
  Transmission Date: 20251021
  Serious: Yes (Hospitalization, Other)
  Sender: NOVO NORDISK
  Company Number: US-NOVOPROD-1279600

PATIENT
  Age: 68 Year
  Sex: Male
  Weight: 103.8 kg

DRUGS (13)
  1. METFORMIN [Concomitant]
     Active Substance: METFORMIN HYDROCHLORIDE
     Indication: Diabetes mellitus
     Dates: start: 20230828
  2. AMLODIPINE BESYLATE [Concomitant]
     Active Substance: AMLODIPINE BESYLATE
     Indication: Blood pressure increased
     Dates: start: 2018, end: 20240807
  3. CARISOPRODOL [Concomitant]
     Active Substance: CARISOPRODOL
     Indication: Back pain
     Dates: start: 2013, end: 20240807
  4. GABAPENTIN [Concomitant]
     Active Substance: GABAPENTIN
     Indication: Diabetic neuropathy
     Dates: start: 2013
  5. GEMFIBROZIL [Concomitant]
     Active Substance: GEMFIBROZIL
     Indication: Blood cholesterol increased
     Dates: start: 2019
  6. LOSARTAN ^AGP^ [Concomitant]
     Indication: Hypotension
     Dates: start: 2013, end: 20240807
  7. LOSARTAN ^AGP^ [Concomitant]
     Indication: Hypertension
  8. SIMVASTATIN [Concomitant]
     Active Substance: SIMVASTATIN
     Indication: Blood cholesterol increased
     Dates: start: 2000
  9. VITAMIN D2 [Concomitant]
     Active Substance: ERGOCALCIFEROL
     Indication: Vitamin D deficiency
     Dates: start: 2017
  10. PEDIALYTE [GLUCOSE;POTASSIUM CITRATE;SODIUM CITRATE ACID] [Concomitant]
     Indication: Nausea
  11. METOPROLOL SUCCINATE [Concomitant]
     Active Substance: METOPROLOL SUCCINATE
     Indication: Blood pressure increased
     Route: 058
  12. RYBELSUS [Suspect]
     Active Substance: SEMAGLUTIDE
     Dates: start: 20240727
  13. RYBELSUS [Suspect]
     Active Substance: SEMAGLUTIDE
     Indication: Type 2 diabetes mellitus
     Dosage: 14 MG, QD
     Route: 048
     Dates: start: 20240402, end: 20240722

REACTIONS (1)
  - Hypotension [Recovered/Resolved]

NARRATIVE: CASE EVENT DATE: 20240724
